FAERS Safety Report 15711596 (Version 1)
Quarter: 2018Q4

REPORT INFORMATION
  Report Type: Spontaneous
  Country: FR (occurrence: FR)
  Receive Date: 20181212
  Receipt Date: 20181212
  Transmission Date: 20190205
  Serious: Yes (Hospitalization, Other)
  Sender: FDA-Public Use
  Company Number: FR-ZYDUS-029447

PATIENT
  Age: 50 Month
  Sex: Female

DRUGS (1)
  1. TRAMADOL. [Suspect]
     Active Substance: TRAMADOL
     Indication: PROCEDURAL PAIN
     Route: 065

REACTIONS (10)
  - Loss of consciousness [Recovered/Resolved]
  - Toxicity to various agents [Recovered/Resolved]
  - Hypertonia [Unknown]
  - Respiratory depth decreased [Recovered/Resolved with Sequelae]
  - Vaginal haemorrhage [Recovered/Resolved]
  - Product use issue [Recovered/Resolved]
  - Accidental overdose [Unknown]
  - Seizure [Recovered/Resolved]
  - Respiratory arrest [Recovered/Resolved]
  - Pneumonia aspiration [Not Recovered/Not Resolved]
